FAERS Safety Report 5388171-4 (Version None)
Quarter: 2007Q3

REPORT INFORMATION
  Report Type: 
  Country: None (occurrence: None)
  Receive Date: 20070716
  Receipt Date: 20070105
  Transmission Date: 20080115
  Serious: No
  Sender: FDA-Public Use
  Company Number: A0634062A

PATIENT
  Age: 43 Year
  Sex: Female

DRUGS (2)
  1. NICORETTE [Suspect]
     Dates: start: 20070104, end: 20070104
  2. NICODERM CQ [Suspect]

REACTIONS (4)
  - DYSGEUSIA [None]
  - DYSPEPSIA [None]
  - MALAISE [None]
  - NAUSEA [None]
